FAERS Safety Report 8018471-0 (Version None)
Quarter: 2012Q1

REPORT INFORMATION
  Report Type: 
  Country: None (occurrence: None)
  Receive Date: 20120103
  Receipt Date: 20111223
  Transmission Date: 20120608
  Serious: Yes (Death, Hospitalization)
  Sender: FDA-Public Use
  Company Number: DE-ASTELLAS-2011US008329

PATIENT
  Sex: Male
  Weight: 67 kg

DRUGS (5)
  1. ERLOTINIB HYDROCHLORIDE [Suspect]
     Indication: LUNG ADENOCARCINOMA
     Dosage: 150 MG, UID/QD
     Route: 048
     Dates: start: 20111005
  2. PRAVASINE [Concomitant]
     Indication: HYPERTENSION
     Dosage: UNK
     Route: 048
  3. ESCOR [Concomitant]
     Indication: HYPERTENSION
     Dosage: 1 DF, UID/QD
     Route: 048
  4. BISOPROLOL [Concomitant]
     Indication: HYPERTENSION
     Dosage: 5 MG, UID/QD
     Route: 065
  5. PANTOPRAZOLE [Concomitant]
     Indication: DYSPEPSIA
     Dosage: UNK
     Route: 065
     Dates: start: 20110510

REACTIONS (7)
  - MALIGNANT PERITONEAL NEOPLASM [None]
  - NEOPLASM PROGRESSION [None]
  - INFECTIOUS PERITONITIS [None]
  - ILEUS PARALYTIC [None]
  - URINARY TRACT INFECTION [None]
  - PNEUMONIA [None]
  - ABDOMINAL PAIN [None]
